FAERS Safety Report 21943309 (Version 3)
Quarter: 2023Q2

REPORT INFORMATION
  Report Type: Spontaneous
  Country: DE (occurrence: DE)
  Receive Date: 20230202
  Receipt Date: 20230408
  Transmission Date: 20230722
  Serious: Yes (Hospitalization, Other)
  Sender: FDA-Public Use
  Company Number: DE-002147023-NVSC2022DE221949

PATIENT
  Sex: Female

DRUGS (4)
  1. PREDNISOLONE [Suspect]
     Active Substance: PREDNISOLONE
     Indication: Papilloedema
     Dosage: UNK
     Dates: start: 2022
  2. PREDNISOLONE [Suspect]
     Active Substance: PREDNISOLONE
     Indication: Choroidal effusion
  3. PREDNISOLONE [Suspect]
     Active Substance: PREDNISOLONE
     Indication: Blindness
  4. TASIGNA [Suspect]
     Active Substance: NILOTINIB
     Indication: Leukaemia
     Dosage: 300 MILLIGRAM DAILY; 300 MG, QD (150 MG, BID (2-0-0-2) (2X IN THE MORNING AND 2X IN THE EVENING AFTE
     Dates: start: 20220427, end: 20220916

REACTIONS (33)
  - Dry eye [Unknown]
  - Blindness unilateral [Not Recovered/Not Resolved]
  - Papilloedema [Recovering/Resolving]
  - Choroiditis [Recovering/Resolving]
  - Photopsia [Recovering/Resolving]
  - Sjogren^s syndrome [Unknown]
  - Vision blurred [Recovering/Resolving]
  - Papillitis [Recovering/Resolving]
  - Optic nerve injury [Unknown]
  - Astigmatism [Unknown]
  - Dry skin [Unknown]
  - Alopecia [Recovered/Resolved]
  - Arthralgia [Unknown]
  - Rash pruritic [Unknown]
  - Trichoglossia [Unknown]
  - Pain of skin [Unknown]
  - Skin exfoliation [Unknown]
  - Headache [Unknown]
  - Noninfective gingivitis [Unknown]
  - Pruritus [Recovered/Resolved]
  - Cough [Unknown]
  - Breast pain [Unknown]
  - Visual impairment [Unknown]
  - Lactation puerperal increased [Unknown]
  - Dizziness [Unknown]
  - Diplopia [Unknown]
  - Drug ineffective [Unknown]
  - Paraesthesia [Unknown]
  - Feeling abnormal [Unknown]
  - Asthenia [Unknown]
  - Cytogenetic analysis abnormal [Unknown]
  - Dyspnoea [Unknown]
  - Myopia [Unknown]

NARRATIVE: CASE EVENT DATE: 20220101
